FAERS Safety Report 8347658-2 (Version None)
Quarter: 2012Q2

REPORT INFORMATION
  Report Type: 
  Country: None (occurrence: None)
  Receive Date: 20120509
  Receipt Date: 20120507
  Transmission Date: 20120825
  Serious: Yes (Hospitalization)
  Sender: FDA-Public Use
  Company Number: DE-MERCK-1205DEU00016

PATIENT
  Age: 11 Year
  Sex: Male

DRUGS (2)
  1. BUDESONIDE [Concomitant]
     Route: 061
  2. SINGULAIR [Suspect]
     Indication: ASTHMA
     Route: 048
     Dates: start: 20110101

REACTIONS (2)
  - VISUAL IMPAIRMENT [None]
  - HEADACHE [None]
